FAERS Safety Report 8263890-0 (Version None)
Quarter: 2012Q2

REPORT INFORMATION
  Report Type: 
  Country: None (occurrence: None)
  Receive Date: 20120405
  Receipt Date: 20120321
  Transmission Date: 20120825
  Serious: Yes (Other)
  Sender: FDA-Public Use
  Company Number: PHHY2012FR025932

PATIENT
  Age: 14 Year
  Sex: Male

DRUGS (3)
  1. CYCLOSPORINE [Suspect]
     Indication: STEM CELL TRANSPLANT
  2. ANTI-THYMOCYTE GLOBULIN EQUINE NOS [Suspect]
  3. FLUDARABINE PHOSPHATE [Concomitant]

REACTIONS (1)
  - BONE MARROW FAILURE [None]
